FAERS Safety Report 6773524-X (Version None)
Quarter: 2010Q2

REPORT INFORMATION
  Report Type: 
  Country: None (occurrence: None)
  Receive Date: 20100616
  Receipt Date: 20100524
  Transmission Date: 20101027
  Serious: No
  Sender: FDA-Public Use
  Company Number: US-ABBOTT-10P-163-0647835-00

PATIENT
  Sex: Male
  Weight: 94.886 kg

DRUGS (1)
  1. TRILIPIX [Suspect]
     Indication: BLOOD CHOLESTEROL INCREASED
     Dosage: UNKNOWN
     Dates: start: 20091101, end: 20100320

REACTIONS (2)
  - HEPATIC ENZYME INCREASED [None]
  - MYALGIA [None]
